FAERS Safety Report 25340181 (Version 2)
Quarter: 2025Q2

REPORT INFORMATION
  Report Type: Report from Study
  Country: US (occurrence: US)
  Receive Date: 20250521
  Receipt Date: 20250527
  Transmission Date: 20250716
  Serious: Yes (Other)
  Sender: ABBVIE
  Company Number: US-ABBVIE-6284933

PATIENT
  Age: 56 Year
  Sex: Female

DRUGS (2)
  1. BOTOX [Suspect]
     Active Substance: ONABOTULINUMTOXINA
     Indication: Muscle spasticity
     Route: 065
     Dates: start: 2021, end: 2021
  2. BOTOX [Suspect]
     Active Substance: ONABOTULINUMTOXINA
     Indication: Muscle spasticity
     Route: 065
     Dates: start: 20250220, end: 20250220

REACTIONS (8)
  - Spinal cord injury [Unknown]
  - Gait disturbance [Unknown]
  - Muscle atrophy [Unknown]
  - Muscle spasticity [Unknown]
  - Motor dysfunction [Unknown]
  - Wrong technique in product usage process [Unknown]
  - Hypotonia [Unknown]
  - Adverse drug reaction [Unknown]

NARRATIVE: CASE EVENT DATE: 20250101
